FAERS Safety Report 25069137 (Version 2)
Quarter: 2025Q1

REPORT INFORMATION
  Report Type: Spontaneous
  Country: US (occurrence: US)
  Receive Date: 20250312
  Receipt Date: 20250319
  Transmission Date: 20250408
  Serious: Yes (Death, Other)
  Sender: SANOFI AVENTIS
  Company Number: US-SA-2025SA045305

PATIENT
  Age: 77 Year
  Sex: Male

DRUGS (10)
  1. DUPIXENT [Suspect]
     Active Substance: DUPILUMAB
     Dosage: 300MG, QOW
     Route: 058
     Dates: start: 20200512, end: 20250207
  2. CRESTOR [Concomitant]
     Active Substance: ROSUVASTATIN CALCIUM
     Dosage: 1 DF QD
  3. MEMANTINE [Concomitant]
     Active Substance: MEMANTINE
     Dosage: 1 DF BID
     Route: 048
  4. DONEPEZIL HYDROCHLORIDE [Concomitant]
     Active Substance: DONEPEZIL HYDROCHLORIDE
     Dosage: 1 DF QD
     Route: 048
  5. XHANCE [Concomitant]
     Active Substance: FLUTICASONE PROPIONATE
  6. QUETIAPINE FUMARATE [Concomitant]
     Active Substance: QUETIAPINE FUMARATE
     Dosage: 1 DF, HS
     Route: 048
  7. EPINEPHRINE [Concomitant]
     Active Substance: EPINEPHRINE
     Indication: Hypersensitivity
  8. FLUTICASONE PROPIONATE [Concomitant]
     Active Substance: FLUTICASONE PROPIONATE
  9. ABX [Concomitant]
     Indication: Chronic sinusitis
  10. FERROUS SULFATE [Concomitant]
     Active Substance: FERROUS SULFATE

REACTIONS (5)
  - Death [Fatal]
  - Nasal congestion [Unknown]
  - Increased viscosity of upper respiratory secretion [Unknown]
  - Rhinitis [Unknown]
  - Pruritus [Unknown]

NARRATIVE: CASE EVENT DATE: 20200722
